FAERS Safety Report 7400690-5 (Version None)
Quarter: 2011Q2

REPORT INFORMATION
  Report Type: 
  Country: None (occurrence: None)
  Receive Date: 20110407
  Receipt Date: 20101021
  Transmission Date: 20111010
  Serious: Yes (Hospitalization)
  Sender: FDA-Public Use
  Company Number: A0889274A

PATIENT
  Age: 49 Year
  Sex: Male

DRUGS (1)
  1. AVANDIA [Suspect]
     Indication: DIABETES MELLITUS
     Dosage: 8MG PER DAY
     Route: 048
     Dates: start: 20030823, end: 20080629

REACTIONS (7)
  - MYOCARDIAL INFARCTION [None]
  - LUNG DISORDER [None]
  - CARDIAC FAILURE CONGESTIVE [None]
  - HEART TRANSPLANT [None]
  - PAIN [None]
  - ATRIOVENTRICULAR BLOCK [None]
  - CARDIAC VENTRICULOGRAM LEFT [None]
